FAERS Safety Report 9267677 (Version 2)
Quarter: 2013Q3

REPORT INFORMATION
  Report Type: Spontaneous
  Country: US (occurrence: US)
  Receive Date: 20130502
  Receipt Date: 20130822
  Transmission Date: 20140515
  Serious: Yes (Death)
  Sender: FDA-Public Use
  Company Number: US-MILLENNIUM PHARMACEUTICALS, INC.-2013-03188

PATIENT
  Age: 86 Year
  Sex: Male
  Weight: 107.3 kg

DRUGS (1)
  1. VELCADE [Suspect]
     Indication: PLASMA CELL MYELOMA
     Dosage: 2.34 MG, 1/WEEK
     Route: 058
     Dates: start: 20120822, end: 20130404

REACTIONS (1)
  - Death [Fatal]
